FAERS Safety Report 13872350 (Version 2)
Quarter: 2017Q4

REPORT INFORMATION
  Report Type: Spontaneous
  Country: JP (occurrence: JP)
  Receive Date: 20170816
  Receipt Date: 20171006
  Transmission Date: 20180320
  Serious: Yes (Other)
  Sender: FDA-Public Use
  Company Number: JP-PFIZER INC-2017351312

PATIENT
  Age: 67 Year
  Sex: Male
  Weight: 64.4 kg

DRUGS (38)
  1. NEXIUM [Concomitant]
     Active Substance: ESOMEPRAZOLE MAGNESIUM
     Dosage: UNK
  2. ALLOID G [Concomitant]
     Active Substance: SODIUM ALGINATE
     Dosage: UNK
  3. JEVTANA [Concomitant]
     Active Substance: CABAZITAXEL
     Indication: HORMONE-REFRACTORY PROSTATE CANCER
     Dosage: UNK
     Dates: start: 20161024, end: 20170116
  4. RINDERON V [Suspect]
     Active Substance: BETAMETHASONE VALERATE
     Indication: PAIN
     Dosage: 2 MG, ONCE OR TWICE A DAY
  5. MAGNESIUM OXIDE. [Concomitant]
     Active Substance: MAGNESIUM OXIDE
     Dosage: UNK
  6. LEUPLIN [Concomitant]
     Active Substance: LEUPROLIDE ACETATE
     Indication: HORMONE-REFRACTORY PROSTATE CANCER
     Dosage: UNK, SINGLE
     Route: 058
     Dates: start: 20170116, end: 20170116
  7. GONAX [Concomitant]
     Active Substance: DEGARELIX
     Indication: HORMONE-REFRACTORY PROSTATE CANCER
     Dosage: UNK
     Dates: start: 20130919
  8. TRAMAL [Concomitant]
     Active Substance: TRAMADOL
     Dosage: UNK
     Dates: start: 20150105
  9. DOCETAXEL. [Concomitant]
     Active Substance: DOCETAXEL
     Indication: HORMONE-REFRACTORY PROSTATE CANCER
     Dosage: UNK
     Dates: start: 20150907, end: 20160307
  10. EQUA [Concomitant]
     Active Substance: VILDAGLIPTIN
     Dosage: UNK
     Dates: end: 20170601
  11. LYRICA [Suspect]
     Active Substance: PREGABALIN
     Dosage: 50 MG, 3X/DAY
     Route: 048
     Dates: start: 20170527, end: 20170530
  12. ZANTAC [Concomitant]
     Active Substance: RANITIDINE HYDROCHLORIDE
     Dosage: UNK
  13. TRESIBA [Concomitant]
     Active Substance: INSULIN DEGLUDEC
     Dosage: UNK
  14. LEUPLIN [Concomitant]
     Active Substance: LEUPROLIDE ACETATE
     Dosage: 11.25 MG, SINGLE
     Route: 058
     Dates: start: 20170601, end: 20170601
  15. XTANDI [Concomitant]
     Active Substance: ENZALUTAMIDE
     Indication: HORMONE-REFRACTORY PROSTATE CANCER
     Dosage: UNK
     Route: 048
     Dates: start: 20160411, end: 20161023
  16. METFORMIN [Concomitant]
     Active Substance: METFORMIN HYDROCHLORIDE
     Dosage: UNK
     Dates: end: 20170601
  17. TRAZODONE [Concomitant]
     Active Substance: TRAZODONE HYDROCHLORIDE
     Dosage: UNK
  18. LASIX [Concomitant]
     Active Substance: FUROSEMIDE
     Dosage: UNK
  19. CETILO [Concomitant]
     Active Substance: SENNA LEAF
     Dosage: UNK
  20. LOXOPROFEN SODIUM [EMEC] [Suspect]
     Active Substance: LOXOPROFEN SODIUM
     Indication: CANCER PAIN
     Dosage: 60 MG, 3X/DAY
     Route: 048
     Dates: start: 20170529
  21. BAYASPIRIN [Concomitant]
     Active Substance: ASPIRIN
     Dosage: UNK
  22. EQUMET COMBINATION TABLETS [Concomitant]
     Dosage: UNK
  23. BETAMETHASONE. [Concomitant]
     Active Substance: BETAMETHASONE
     Dosage: 2 MG, DAILY
     Dates: start: 20170531
  24. LYRICA [Suspect]
     Active Substance: PREGABALIN
     Dosage: 25 MG, 2X/DAY
     Route: 048
     Dates: start: 20150623, end: 20170315
  25. LYRICA [Suspect]
     Active Substance: PREGABALIN
     Dosage: 100 MG, 3X/DAY
     Route: 048
     Dates: start: 20170531, end: 20170601
  26. ABSTRAL [Suspect]
     Active Substance: FENTANYL CITRATE
     Indication: PAIN
     Dosage: 400 UG, AS NEEDED
     Route: 060
  27. DAIKENCHUTO [Concomitant]
     Active Substance: HERBALS
     Dosage: UNK
  28. CALONAL [Concomitant]
     Active Substance: ACETAMINOPHEN
     Dosage: 1200 MG, 1X/DAY
     Route: 048
     Dates: start: 20170601
  29. BELSOMRA [Concomitant]
     Active Substance: SUVOREXANT
     Dosage: 15 MG, DAILY
     Dates: start: 20170529
  30. AMITIZA [Concomitant]
     Active Substance: LUBIPROSTONE
     Dosage: UNK
  31. RANMARK [Concomitant]
     Active Substance: DENOSUMAB
     Dosage: UNK
     Route: 058
     Dates: start: 20150428, end: 20151130
  32. LYRICA [Suspect]
     Active Substance: PREGABALIN
     Indication: NEUROPATHY PERIPHERAL
     Dosage: UNK
     Route: 048
     Dates: start: 20150105, end: 20150622
  33. LYRICA [Suspect]
     Active Substance: PREGABALIN
     Dosage: 50 MG, 2X/DAY
     Route: 048
     Dates: start: 20170316, end: 20170421
  34. LYRICA [Suspect]
     Active Substance: PREGABALIN
     Dosage: UNK
     Route: 048
     Dates: start: 20170422, end: 20170526
  35. FENTOS TAPE [Suspect]
     Active Substance: FENTANYL
     Indication: PAIN
     Dosage: 16 MG, DAILY
     Route: 061
  36. SEIBULE [Concomitant]
     Active Substance: MIGLITOL
     Dosage: UNK
     Dates: end: 20170601
  37. METOCLOPRAMIDE. [Concomitant]
     Active Substance: METOCLOPRAMIDE
     Dosage: UNK
  38. XOFIGO [Concomitant]
     Active Substance: RADIUM RA-223 DICHLORIDE
     Indication: HORMONE-REFRACTORY PROSTATE CANCER
     Dosage: UNK
     Dates: start: 20170216, end: 20170511

REACTIONS (5)
  - Disseminated intravascular coagulation [Unknown]
  - Metastases to bone [Unknown]
  - Drug effect incomplete [Unknown]
  - Osteonecrosis of jaw [Unknown]
  - Rhabdomyolysis [Recovering/Resolving]

NARRATIVE: CASE EVENT DATE: 20170601
